FAERS Safety Report 14330836 (Version 1)
Quarter: 2017Q4

REPORT INFORMATION
  Report Type: Spontaneous
  Country: DE (occurrence: DE)
  Receive Date: 20171228
  Receipt Date: 20171228
  Transmission Date: 20180321
  Serious: Yes (Hospitalization)
  Sender: FDA-Public Use
  Company Number: DE-ROCHE-2044991

PATIENT
  Age: 78 Year
  Sex: Male
  Weight: 79 kg

DRUGS (2)
  1. CAPECITABINE. [Suspect]
     Active Substance: CAPECITABINE
     Indication: COLON CANCER
     Dosage: CUMULATIVE DOSE: 28000 MG/M2.
     Route: 065
     Dates: start: 20170831, end: 20171026
  2. AXIPLATIN [Suspect]
     Active Substance: OXALIPLATIN
     Indication: COLON CANCER
     Dosage: CUMULATIVE DOSE: 280 MG/M2.?STRENGTH: 5 MG/ML.
     Route: 042
     Dates: start: 20170831, end: 20171026

REACTIONS (2)
  - Dehydration [Recovering/Resolving]
  - Gastrointestinal toxicity [Recovering/Resolving]

NARRATIVE: CASE EVENT DATE: 20171004
